FAERS Safety Report 9146689 (Version 1)
Quarter: 2013Q1

REPORT INFORMATION
  Report Type: Spontaneous
  Country: US (occurrence: JP)
  Receive Date: 20130307
  Receipt Date: 20130307
  Transmission Date: 20140127
  Serious: Yes (Other)
  Sender: FDA-Public Use
  Company Number: JP-PFIZER INC-2012SP004990

PATIENT
  Age: 62 Year
  Sex: Female

DRUGS (7)
  1. FLUOROURACIL [Suspect]
     Indication: INVASIVE LOBULAR BREAST CARCINOMA
     Dosage: 1.4 MG, UNK
  2. DOXORUBICIN [Suspect]
     Indication: INVASIVE LOBULAR BREAST CARCINOMA
     Dosage: 240 MG, UNK
  3. PACLITAXEL [Suspect]
     Indication: INVASIVE LOBULAR BREAST CARCINOMA
     Dosage: 1080 MG, UNK
  4. CYCLOPHOSPHAMIDE [Suspect]
     Indication: INVASIVE LOBULAR BREAST CARCINOMA
     Dosage: 1.4 MG, UNK
  5. TAMOXIFEN CITRATE [Suspect]
     Indication: BREAST CANCER
     Dosage: 20 MG, 1X/DAY, 44 MONTHS
     Route: 048
  6. ANASTROZOLE [Suspect]
     Indication: BREAST CANCER
     Dosage: 1 MG, 1X/DAY, 26 MONTHS
     Route: 048
  7. EXEMESTANE [Suspect]
     Indication: BREAST CANCER
     Dosage: 25 MG, 1X/DAY
     Route: 048

REACTIONS (2)
  - Second primary malignancy [Unknown]
  - Myelodysplastic syndrome [Unknown]
